FAERS Safety Report 9528288 (Version 2)
Quarter: 2015Q4

REPORT INFORMATION
  Report Type: Spontaneous
  Country: US (occurrence: US)
  Receive Date: 20130917
  Receipt Date: 20151218
  Transmission Date: 20160305
  Serious: Yes (Hospitalization, Other)
  Sender: FDA-Public Use
  Company Number: US-BAYER-2013-109795

PATIENT
  Age: 24 Year
  Sex: Female
  Weight: 63.49 kg

DRUGS (6)
  1. ZOCOR [Concomitant]
     Active Substance: SIMVASTATIN
  2. FOLTX [Concomitant]
     Active Substance: CYANOCOBALAMIN CO-57\FOLIC ACID\PYRIDOXINE HYDROCHLORIDE
  3. YAZ [Suspect]
     Active Substance: DROSPIRENONE\ETHINYL ESTRADIOL
  4. IMIPRAMINE [Concomitant]
     Active Substance: IMIPRAMINE
  5. SIMVASTATIN. [Concomitant]
     Active Substance: SIMVASTATIN
  6. YASMIN [Suspect]
     Active Substance: DROSPIRENONE\ETHINYL ESTRADIOL

REACTIONS (3)
  - Cerebral artery occlusion [None]
  - Embolism arterial [None]
  - Transient ischaemic attack [None]

NARRATIVE: CASE EVENT DATE: 20070817
